FAERS Safety Report 8799905 (Version 2)
Quarter: 2012Q4

REPORT INFORMATION
  Report Type: 
  Country: US (occurrence: US)
  Receive Date: 20120919
  Receipt Date: 20121030
  Transmission Date: 20130627
  Serious: No
  Sender: FDA-Public Use
  Company Number: US-009507513-1209USA002981

PATIENT
  Age: 35 Year
  Sex: Male

DRUGS (1)
  1. JANUMET XR [Suspect]
     Indication: BLOOD GLUCOSE
     Dosage: 1000/50 mg 1 pill, qd
     Route: 048

REACTIONS (2)
  - Hypoglycaemia [Recovering/Resolving]
  - Inappropriate schedule of drug administration [Unknown]
